FAERS Safety Report 9093622 (Version 2)
Quarter: 2013Q2

REPORT INFORMATION
  Report Type: Spontaneous
  Country: HR (occurrence: HR)
  Receive Date: 20130201
  Receipt Date: 20130425
  Transmission Date: 20140414
  Serious: Yes (Death, Other)
  Sender: FDA-Public Use
  Company Number: HR-ABBOTT-13P-216-1042633-00

PATIENT
  Age: 55 Year
  Sex: Female
  Weight: 46 kg

DRUGS (4)
  1. ZEMPLAR [Suspect]
     Indication: TUBULOINTERSTITIAL NEPHRITIS
     Dosage: 5 UG/ML
     Route: 051
     Dates: start: 20090908, end: 20121228
  2. DECORTIN [Concomitant]
     Indication: PRODUCT USED FOR UNKNOWN INDICATION
  3. PEPTORAN [Concomitant]
     Indication: PRODUCT USED FOR UNKNOWN INDICATION
  4. VITAMIN B/C [Concomitant]
     Indication: PRODUCT USED FOR UNKNOWN INDICATION

REACTIONS (4)
  - Myocardial infarction [Fatal]
  - Cerebrovascular accident [Fatal]
  - Cardiac pacemaker insertion [Unknown]
  - Hypercalcaemia [Unknown]
